FAERS Safety Report 10049626 (Version 1)
Quarter: 2014Q1

REPORT INFORMATION
  Report Type: Spontaneous
  Country: US (occurrence: None)
  Receive Date: 20140328
  Receipt Date: 20140328
  Transmission Date: 20141002
  Serious: Yes (Other)
  Sender: FDA-Public Use
  Company Number: 2014P1002508

PATIENT
  Age: 41 Year
  Sex: Male

DRUGS (2)
  1. AMOXICILLIN [Suspect]
  2. UNSPECIFIED CEPHALOSPORINE [Suspect]

REACTIONS (4)
  - Drug reaction with eosinophilia and systemic symptoms [None]
  - Skin test positive [None]
  - Epstein-Barr virus infection [None]
  - Human herpesvirus 6 infection [None]
